FAERS Safety Report 19194082 (Version 1)
Quarter: 2021Q2

REPORT INFORMATION
  Report Type: Spontaneous
  Country: US (occurrence: US)
  Receive Date: 20210428
  Receipt Date: 20210428
  Transmission Date: 20210717
  Serious: Yes (Hospitalization)
  Sender: FDA-Public Use
  Company Number: None

PATIENT
  Age: 77 Year
  Sex: Male
  Weight: 74 kg

DRUGS (1)
  1. IOPAMIDOL (IOPAMIDOL 755MG/ML INJ) [Suspect]
     Active Substance: IOPAMIDOL
     Indication: COMPUTERISED TOMOGRAM
     Dosage: ?          OTHER ROUTE:IV?
     Dates: start: 20201110, end: 20201110

REACTIONS (5)
  - Anaphylactic reaction [None]
  - Dyspnoea [None]
  - Hypotension [None]
  - Tachycardia [None]
  - Unresponsive to stimuli [None]

NARRATIVE: CASE EVENT DATE: 20201110
